FAERS Safety Report 6997265-9 (Version None)
Quarter: 2010Q3

REPORT INFORMATION
  Report Type: 
  Country: None (occurrence: None)
  Receive Date: 20100918
  Receipt Date: 20091103
  Transmission Date: 20110219
  Serious: No
  Sender: FDA-Public Use
  Company Number: US-WYE-H11210909

PATIENT
  Sex: Female
  Weight: 73.09 kg

DRUGS (6)
  1. PRISTIQ [Suspect]
     Indication: DEPRESSION
     Route: 048
     Dates: start: 20090908
  2. PLENDIL [Concomitant]
  3. PROPRANOLOL [Concomitant]
  4. SYNTHROID [Concomitant]
  5. ACETYLSALICYLIC ACID [Concomitant]
  6. COUMADIN [Concomitant]

REACTIONS (3)
  - BURNING SENSATION [None]
  - FEELING JITTERY [None]
  - HEADACHE [None]
